FAERS Safety Report 15851640 (Version 1)
Quarter: 2019Q1

REPORT INFORMATION
  Report Type: Spontaneous
  Country: ES (occurrence: ES)
  Receive Date: 20190122
  Receipt Date: 20190122
  Transmission Date: 20190417
  Serious: Yes (Life-Threatening, Hospitalization, Other)
  Sender: FDA-Public Use
  Company Number: ES-ACCORD-102806

PATIENT
  Age: 49 Year
  Sex: Male

DRUGS (14)
  1. PROGRAF [Suspect]
     Active Substance: TACROLIMUS\TACROLIMUS ANHYDROUS
     Indication: LIVER TRANSPLANT
     Dosage: ALSO TAKEN 1 MG FROM 18-JAN-2015 TO 20-JAN-2015
     Route: 048
     Dates: start: 20150114, end: 20150116
  2. FUROSEMIDE. [Suspect]
     Active Substance: FUROSEMIDE
     Indication: OLIGURIA
     Dosage: 40 MG, Q8H
     Route: 042
     Dates: start: 20150110
  3. MIDAZOLAM [Concomitant]
     Active Substance: MIDAZOLAM HYDROCHLORIDE
     Indication: HYPNOTHERAPY
     Dosage: 10 ML/QH
     Route: 042
     Dates: start: 20150110
  4. METHYLPREDNISOLONE. [Concomitant]
     Active Substance: METHYLPREDNISOLONE
     Indication: LIVER TRANSPLANT
     Dosage: 40 MG, QD
     Route: 042
     Dates: start: 20150110
  5. FLUCONAZOLE. [Concomitant]
     Active Substance: FLUCONAZOLE
     Indication: PROPHYLAXIS
     Dosage: 200 MG, QD
     Route: 042
     Dates: start: 20150115
  6. PANTOPRAZOLE [Concomitant]
     Active Substance: PANTOPRAZOLE
     Indication: PROPHYLAXIS
     Dosage: 40 MG, QD
     Route: 042
     Dates: start: 20150110
  7. MYCOPHENOLIC ACID. [Concomitant]
     Active Substance: MYCOPHENOLIC ACID
     Indication: LIVER TRANSPLANT
     Dosage: 1000 MG, BID
     Route: 042
     Dates: start: 20150110
  8. PROGRAF [Suspect]
     Active Substance: TACROLIMUS\TACROLIMUS ANHYDROUS
     Indication: PRODUCT USED FOR UNKNOWN INDICATION
     Dosage: 1 MG, BID
     Route: 048
     Dates: start: 20150118, end: 20150120
  9. AMPHOTERICIN B/AMPHOTERICIN B/LIPOSOME [Concomitant]
     Indication: PROPHYLAXIS
     Dosage: 25 MG (NEBULIZATION), Q48H
     Route: 065
     Dates: start: 20150112
  10. VANCOMYCIN [Suspect]
     Active Substance: VANCOMYCIN
     Indication: PYREXIA
     Dosage: 1 G, ONCE/SINGLE
     Route: 042
     Dates: start: 20150116, end: 20150116
  11. NOREPINEPHRINE. [Suspect]
     Active Substance: NOREPINEPHRINE
     Indication: SUPPORTIVE CARE
     Dosage: 24 ML, QH
     Route: 042
     Dates: start: 20150110
  12. MORPHINE [Concomitant]
     Active Substance: MORPHINE
     Indication: ANALGESIC THERAPY
     Dosage: 1 ML/QH
     Route: 042
     Dates: start: 20150110
  13. OMEPRAZOLE. [Concomitant]
     Active Substance: OMEPRAZOLE
     Indication: PROPHYLAXIS AGAINST GASTROINTESTINAL ULCER
     Dosage: 20 MG, QD
     Route: 048
     Dates: start: 20150119
  14. PROPOFOL. [Concomitant]
     Active Substance: PROPOFOL
     Indication: HYPNOTHERAPY
     Dosage: UNK
     Route: 042

REACTIONS (4)
  - Seizure [Recovered/Resolved]
  - Intra-abdominal haemorrhage [Recovered/Resolved]
  - Renal failure [Recovered/Resolved]
  - Postoperative wound infection [Recovered/Resolved]

NARRATIVE: CASE EVENT DATE: 20150110
